FAERS Safety Report 15945233 (Version 2)
Quarter: 2019Q1

REPORT INFORMATION
  Report Type: Report from Study
  Country: US (occurrence: US)
  Receive Date: 20190211
  Receipt Date: 20190304
  Transmission Date: 20190417
  Serious: No
  Sender: FDA-Public Use
  Company Number: US-SA-2019SA033709

PATIENT
  Age: 51 Year
  Sex: Female

DRUGS (1)
  1. TERIFLUNOMIDE. [Suspect]
     Active Substance: TERIFLUNOMIDE
     Dosage: 14 MG, QD
     Route: 048
     Dates: start: 20190116

REACTIONS (12)
  - Joint swelling [Unknown]
  - Cardiac disorder [Unknown]
  - Blood pressure increased [Unknown]
  - Stress [Unknown]
  - Memory impairment [Unknown]
  - Impaired healing [Unknown]
  - Diarrhoea [Not Recovered/Not Resolved]
  - Aphasia [Unknown]
  - Peripheral swelling [Unknown]
  - Product dose omission [Unknown]
  - Cognitive disorder [Unknown]
  - Headache [Unknown]

NARRATIVE: CASE EVENT DATE: 2019
